FAERS Safety Report 9150678 (Version 1)
Quarter: 2013Q1

REPORT INFORMATION
  Report Type: Spontaneous
  Country: US (occurrence: US)
  Receive Date: 20130308
  Receipt Date: 20130308
  Transmission Date: 20140127
  Serious: No
  Sender: FDA-Public Use
  Company Number: US-ENDO PHARMACEUTICALS INC.-OPCR20121319

PATIENT
  Sex: Female

DRUGS (2)
  1. OPANA ER [Suspect]
     Indication: ARTHRALGIA
     Dosage: 10 MG
     Route: 048
     Dates: start: 2012, end: 2012
  2. OPANA ER [Suspect]
     Indication: COMPLEX REGIONAL PAIN SYNDROME
     Dosage: 20 MG
     Route: 048
     Dates: start: 2012, end: 2012

REACTIONS (2)
  - Malaise [Unknown]
  - Vomiting [Recovered/Resolved]
